FAERS Safety Report 4434523-6 (Version None)
Quarter: 2004Q3

REPORT INFORMATION
  Report Type: 
  Country: None (occurrence: None)
  Receive Date: 20040726
  Receipt Date: 20040412
  Transmission Date: 20050211
  Serious: No
  Sender: FDA-Public Use
  Company Number: USA040464756

PATIENT
  Age: 76 Year
  Sex: Female
  Weight: 68 kg

DRUGS (14)
  1. FORTEO [Suspect]
     Indication: OSTEOPOROSIS
     Dosage: 20 UG/DAY
     Dates: start: 20030901
  2. TIKOSYN [Concomitant]
  3. ASPIRIN [Concomitant]
  4. FLUDROCORTISONE ACETATE [Concomitant]
  5. ATENOLOL [Concomitant]
  6. MULTIVITAMIN [Concomitant]
  7. CALCIUM WITH VITAMIN D [Concomitant]
  8. PREVACID [Concomitant]
  9. BEXTRA [Concomitant]
  10. ZOLOFT [Concomitant]
  11. MIRAPEX (MIRAPEX) [Concomitant]
  12. DITROPAN [Concomitant]
  13. DEPAKOTE [Concomitant]
  14. TYLENOL [Concomitant]

REACTIONS (2)
  - MEDICATION ERROR [None]
  - OVERDOSE [None]
